FAERS Safety Report 9688880 (Version 2)
Quarter: 2013Q4

REPORT INFORMATION
  Report Type: Report from Study
  Country: RU (occurrence: RU)
  Receive Date: 20131114
  Receipt Date: 20131126
  Transmission Date: 20140711
  Serious: Yes (Other)
  Sender: FDA-Public Use
  Company Number: RU-ROCHE-1303052

PATIENT
  Age: 61 Year
  Sex: Male
  Weight: 82 kg

DRUGS (5)
  1. AVASTIN [Suspect]
     Indication: COLON CANCER METASTATIC
     Route: 065
     Dates: start: 20130516
  2. XELODA [Concomitant]
     Indication: COLON CANCER METASTATIC
     Route: 065
     Dates: start: 20130918
  3. IRINOTECAN [Concomitant]
     Indication: COLON CANCER METASTATIC
     Route: 065
     Dates: start: 20130516, end: 20130821
  4. MITOMYCIN [Concomitant]
     Indication: COLON CANCER METASTATIC
     Route: 065
     Dates: start: 20130516, end: 20130821
  5. OXALIPLATIN [Concomitant]
     Indication: COLON CANCER METASTATIC
     Route: 065
     Dates: start: 20130918

REACTIONS (1)
  - Disease progression [Not Recovered/Not Resolved]
